FAERS Safety Report 6268002-0 (Version None)
Quarter: 2009Q3

REPORT INFORMATION
  Report Type: 
  Country: None (occurrence: None)
  Receive Date: 20090713
  Receipt Date: 20090708
  Transmission Date: 20100115
  Serious: Yes (Hospitalization)
  Sender: FDA-Public Use
  Company Number: WWISSUE-311

PATIENT

DRUGS (1)
  1. PREDNISONE TAB [Suspect]

REACTIONS (3)
  - LEGAL PROBLEM [None]
  - OSTEONECROSIS [None]
  - PRODUCT LABEL ISSUE [None]
